FAERS Safety Report 6400745-8 (Version None)
Quarter: 2009Q4

REPORT INFORMATION
  Report Type: 
  Country: None (occurrence: None)
  Receive Date: 20091014
  Receipt Date: 20090901
  Transmission Date: 20100525
  Serious: Yes (Death, Other)
  Sender: FDA-Public Use
  Company Number: US-BAXTER-2008BH013255

PATIENT
  Age: 40 Year
  Sex: Male
  Weight: 100 kg

DRUGS (26)
  1. HEPARIN SODIUM INJECTION [Suspect]
     Indication: HAEMODIALYSIS
     Route: 010
     Dates: start: 20080125, end: 20080128
  2. HEPARIN SODIUM INJECTION [Suspect]
     Indication: THROMBOSIS PROPHYLAXIS
     Route: 010
     Dates: start: 20080125, end: 20080128
  3. HEPARIN SODIUM INJECTION [Suspect]
     Indication: INTRAVENOUS CATHETER MANAGEMENT
     Route: 010
     Dates: start: 20080125, end: 20080128
  4. HEPARIN SODIUM INJECTION [Suspect]
     Route: 010
     Dates: start: 20080129, end: 20080129
  5. HEPARIN SODIUM INJECTION [Suspect]
     Route: 010
     Dates: start: 20080129, end: 20080129
  6. HEPARIN SODIUM INJECTION [Suspect]
     Route: 010
     Dates: start: 20080129, end: 20080129
  7. HEPARIN SODIUM INJECTION [Suspect]
     Route: 010
     Dates: start: 20080130, end: 20080130
  8. HEPARIN SODIUM INJECTION [Suspect]
     Route: 010
     Dates: start: 20080130, end: 20080130
  9. HEPARIN SODIUM INJECTION [Suspect]
     Route: 010
     Dates: start: 20080130, end: 20080130
  10. HEPARIN SODIUM INJECTION [Suspect]
     Route: 058
     Dates: start: 20080131
  11. HEPARIN SODIUM INJECTION [Suspect]
     Route: 058
     Dates: start: 20080131
  12. HEPARIN SODIUM INJECTION [Suspect]
     Route: 058
     Dates: start: 20080131
  13. HEPARIN SODIUM INJECTION [Suspect]
     Route: 042
     Dates: start: 20080131
  14. HEPARIN SODIUM INJECTION [Suspect]
     Route: 042
     Dates: start: 20080131
  15. HEPARIN SODIUM INJECTION [Suspect]
     Route: 042
     Dates: start: 20080131
  16. HEPARIN SODIUM INJECTION [Suspect]
     Route: 010
     Dates: start: 20060301, end: 20071201
  17. HEPARIN SODIUM INJECTION [Suspect]
     Route: 010
     Dates: start: 20060301, end: 20071201
  18. HEPARIN SODIUM INJECTION [Suspect]
     Route: 010
     Dates: start: 20060301, end: 20071201
  19. HEPARIN SODIUM 5,000 UNITS IN DEXTROSE 5% [Suspect]
     Indication: DRUG USE FOR UNKNOWN INDICATION
     Route: 041
     Dates: start: 20080204, end: 20080205
  20. HEPARIN SODIUM 5,000 UNITS IN DEXTROSE 5% [Suspect]
     Route: 041
     Dates: start: 20080205, end: 20080206
  21. HEPARIN SODIUM 5,000 UNITS IN DEXTROSE 5% [Suspect]
     Route: 041
     Dates: start: 20080206
  22. HEPARIN SODIUM 5,000 UNITS IN DEXTROSE 5% [Suspect]
     Route: 041
     Dates: start: 20080131
  23. NOVEL ERYTHROPOIESIS STIMULATING PROTEIN [Concomitant]
     Indication: ANAEMIA
     Route: 065
     Dates: start: 20070118
  24. NEPRO [Concomitant]
     Indication: DRUG USE FOR UNKNOWN INDICATION
  25. INSULIN GLARGINE [Concomitant]
     Indication: DIABETES MELLITUS
  26. VANCOMYCIN [Concomitant]
     Indication: PYREXIA
     Dates: start: 20080108, end: 20080117

REACTIONS (24)
  - ASTHENIA [None]
  - BEDRIDDEN [None]
  - CARDIO-RESPIRATORY ARREST [None]
  - CHEST PAIN [None]
  - CHILLS [None]
  - COMA [None]
  - DIABETES MELLITUS [None]
  - DYSPNOEA [None]
  - ELECTROMECHANICAL DISSOCIATION [None]
  - FALL [None]
  - FATIGUE [None]
  - FOCAL NODULAR HYPERPLASIA [None]
  - INTERCAPILLARY GLOMERULOSCLEROSIS [None]
  - INTRACARDIAC THROMBUS [None]
  - LEUKOCYTOSIS [None]
  - MEDICAL DEVICE COMPLICATION [None]
  - MELAENA [None]
  - NAUSEA [None]
  - PNEUMONIA [None]
  - PULMONARY OEDEMA [None]
  - PYREXIA [None]
  - RENAL FAILURE CHRONIC [None]
  - VENA CAVA THROMBOSIS [None]
  - WEIGHT INCREASED [None]
